FAERS Safety Report 9220670 (Version 1)
Quarter: 2013Q2

REPORT INFORMATION
  Report Type: Spontaneous
  Country: US (occurrence: US)
  Receive Date: 20130409
  Receipt Date: 20130409
  Transmission Date: 20140414
  Serious: Yes (Other)
  Sender: FDA-Public Use
  Company Number: US-ASTRAZENECA-2013SE21036

PATIENT
  Age: 531 Month
  Sex: Male
  Weight: 95.3 kg

DRUGS (2)
  1. NEXIUM [Suspect]
     Indication: GASTROOESOPHAGEAL REFLUX DISEASE
     Route: 048
     Dates: start: 2010, end: 201212
  2. NEXIUM [Suspect]
     Indication: GASTROOESOPHAGEAL REFLUX DISEASE
     Route: 048

REACTIONS (4)
  - Precancerous mucosal lesion [Not Recovered/Not Resolved]
  - Pain [Recovering/Resolving]
  - Sleep disorder [Recovering/Resolving]
  - Intentional drug misuse [Unknown]
